FAERS Safety Report 9858911 (Version 1)
Quarter: 2014Q1

REPORT INFORMATION
  Report Type: Spontaneous
  Country: US (occurrence: US)
  Receive Date: 20140131
  Receipt Date: 20140131
  Transmission Date: 20141002
  Serious: Yes (Death)
  Sender: FDA-Public Use
  Company Number: CHPA2014US001761

PATIENT
  Age: 46 Year
  Sex: Female

DRUGS (6)
  1. TERMALGIN [Suspect]
     Route: 048
  2. METOPROLOL [Suspect]
     Route: 048
  3. OXYCODONE [Suspect]
     Route: 048
  4. CLONAZEPAM [Suspect]
     Route: 048
  5. CITALOPRAM [Suspect]
     Route: 048
  6. ETHANOL [Suspect]
     Route: 048

REACTIONS (1)
  - Completed suicide [Fatal]
